FAERS Safety Report 5124474-6 (Version None)
Quarter: 2006Q4

REPORT INFORMATION
  Report Type: 
  Country: None (occurrence: None)
  Receive Date: 20061006
  Receipt Date: 20060929
  Transmission Date: 20070319
  Serious: No
  Sender: FDA-Public Use
  Company Number: B0440871A

PATIENT
  Age: 72 Year
  Sex: Female

DRUGS (6)
  1. PAXIL [Suspect]
     Indication: DEPRESSION
     Dosage: 20 MG ORAL
     Route: 048
  2. MUPIROCIN [Concomitant]
  3. IBUPROFEN [Concomitant]
  4. CITALOPRAM [Concomitant]
  5. ACETAMINOPHEN W/ CODEINE [Concomitant]
  6. DAKTACORT [Concomitant]

REACTIONS (2)
  - DYSPHAGIA [None]
  - TARDIVE DYSKINESIA [None]
